FAERS Safety Report 5456082-1 (Version None)
Quarter: 2007Q3

REPORT INFORMATION
  Report Type: 
  Country: None (occurrence: None)
  Receive Date: 20070917
  Receipt Date: 20070917
  Transmission Date: 20080115
  Serious: Yes (Other)
  Sender: FDA-Public Use
  Company Number: None

PATIENT
  Sex: Male
  Weight: 87.0906 kg

DRUGS (2)
  1. ZYPREXA [Suspect]
     Indication: BIPOLAR DISORDER
     Dosage: 20MG TABLET QHS PO
     Route: 048
     Dates: start: 20070629
  2. CIPROFLOXACIN [Suspect]
     Indication: LOCALISED INFECTION
     Dosage: 500MG TABLET Q12HOURS PO
     Route: 048
     Dates: start: 20070822, end: 20070829

REACTIONS (3)
  - FALL [None]
  - HALLUCINATION, VISUAL [None]
  - LOCALISED INFECTION [None]
